FAERS Safety Report 7498634-3 (Version None)
Quarter: 2011Q2

REPORT INFORMATION
  Report Type: 
  Country: None (occurrence: None)
  Receive Date: 20110524
  Receipt Date: 20110120
  Transmission Date: 20111010
  Serious: Yes (Hospitalization, Other)
  Sender: FDA-Public Use
  Company Number: US-BAYER-201039823NA

PATIENT
  Age: 37 Year
  Sex: Female
  Weight: 82 kg

DRUGS (22)
  1. YAZ [Suspect]
     Indication: ACNE
     Dosage: UNK
     Dates: start: 20070101, end: 20090429
  2. LOVASTATIN [Concomitant]
     Indication: PRODUCT USED FOR UNKNOWN INDICATION
  3. ZOLOFT [Concomitant]
     Indication: PRODUCT USED FOR UNKNOWN INDICATION
  4. YASMIN [Suspect]
     Indication: POLYCYSTIC OVARIES
     Dosage: UNK
     Dates: start: 20060802, end: 20080321
  5. NSAID'S [Concomitant]
     Indication: PAIN
     Dosage: UNK UNK, PRN
  6. LEVOTHYROXINE SODIUM [Concomitant]
     Indication: HYPOTHYROIDISM
     Dosage: 100 ?G, QD
     Dates: start: 20040826
  7. TOPIRAMATE [Concomitant]
     Indication: PRODUCT USED FOR UNKNOWN INDICATION
  8. VITAMIN D [Concomitant]
     Indication: PRODUCT USED FOR UNKNOWN INDICATION
  9. TYLENOL W/ CODEINE NO. 3 [Concomitant]
     Indication: HEADACHE
  10. DROSPIRENONE AND ETHINYL ESTRADIOL [Suspect]
     Indication: ACNE
  11. SERTRALINE HYDROCHLORIDE [Concomitant]
     Indication: PRODUCT USED FOR UNKNOWN INDICATION
  12. VITAMIN B-12 [Concomitant]
  13. ALBUTEROL SULFATE [Concomitant]
     Dosage: UNK
     Dates: start: 20080107
  14. VITAMIN B-12 [Concomitant]
     Indication: PRODUCT USED FOR UNKNOWN INDICATION
  15. AZITHROMYCIN [Concomitant]
     Dosage: UNK
     Dates: start: 20080107
  16. PHENTERMINE [Concomitant]
     Indication: PRODUCT USED FOR UNKNOWN INDICATION
  17. SIMVASTATIN [Concomitant]
     Indication: HYPERCHOLESTEROLAEMIA
     Dosage: 10 MG, QD
     Dates: start: 20061120, end: 20090627
  18. BUTALBITAL [Concomitant]
  19. YASMIN [Suspect]
     Indication: MENORRHAGIA
  20. ASPIRIN [Concomitant]
     Indication: HEADACHE
     Dosage: UNK
     Dates: start: 20090430
  21. STATIN [Concomitant]
     Dosage: UNK
     Dates: start: 20090430
  22. SYNTHROID [Concomitant]

REACTIONS (9)
  - CHEST PAIN [None]
  - DEPRESSION [None]
  - INJURY [None]
  - CEREBROVASCULAR ACCIDENT [None]
  - TRANSIENT ISCHAEMIC ATTACK [None]
  - DYSPNOEA [None]
  - STRESS [None]
  - CHEST DISCOMFORT [None]
  - PULMONARY EMBOLISM [None]
